FAERS Safety Report 23538944 (Version 1)
Quarter: 2024Q1

REPORT INFORMATION
  Report Type: Spontaneous
  Country: US (occurrence: US)
  Receive Date: 20240219
  Receipt Date: 20240219
  Transmission Date: 20240409
  Serious: Yes (Hospitalization)
  Sender: FDA-Public Use
  Company Number: US-Indivior Limited-INDV-143149-2024

PATIENT

DRUGS (3)
  1. BUPRENORPHINE [Suspect]
     Active Substance: BUPRENORPHINE
     Indication: Pain
     Dosage: UNK
  2. SUBLOCADE [Suspect]
     Active Substance: BUPRENORPHINE
     Indication: Pain
     Dosage: UNK, QMO
     Route: 058
  3. SUBLOCADE [Suspect]
     Active Substance: BUPRENORPHINE

REACTIONS (3)
  - Sickle cell anaemia with crisis [Unknown]
  - Off label use [Not Recovered/Not Resolved]
  - Drug effective for unapproved indication [Unknown]
